FAERS Safety Report 9350136 (Version 1)
Quarter: 2013Q2

REPORT INFORMATION
  Report Type: Spontaneous
  Country: US (occurrence: US)
  Receive Date: 20130617
  Receipt Date: 20130617
  Transmission Date: 20140414
  Serious: Yes (Other)
  Sender: FDA-Public Use
  Company Number: US-ROCHE-1236239

PATIENT
  Age: 59 Year
  Sex: Male
  Weight: 88.53 kg

DRUGS (6)
  1. PEGASYS [Suspect]
     Indication: HEPATITIS C
     Route: 058
     Dates: start: 20130121, end: 20130611
  2. RIBAPAK [Suspect]
     Indication: HEPATITIS C
     Route: 048
     Dates: start: 20130121, end: 20130611
  3. ASPIRIN [Concomitant]
     Route: 048
  4. FISH OIL [Concomitant]
     Route: 048
  5. LIPITOR [Concomitant]
     Route: 048
  6. LOTREL [Concomitant]
     Dosage: DAILY 5/20 MG
     Route: 048

REACTIONS (2)
  - Disorientation [Recovering/Resolving]
  - Night sweats [Recovering/Resolving]
